FAERS Safety Report 8255951 (Version 2)
Quarter: 2012Q4

REPORT INFORMATION
  Report Type: 
  Country: US (occurrence: US)
  Receive Date: 20111121
  Receipt Date: 20121227
  Transmission Date: 20130627
  Serious: No
  Sender: FDA-Public Use
  Company Number: US-BIOGENIDEC-2011BI043626

PATIENT
  Sex: Female

DRUGS (2)
  1. TYSABRI [Suspect]
     Indication: MULTIPLE SCLEROSIS
     Route: 042
     Dates: start: 20110819
  2. BENADRYL IV [Concomitant]
     Indication: PREMEDICATION

REACTIONS (8)
  - Back pain [Recovered/Resolved]
  - Hemiparesis [Recovered/Resolved]
  - Feeling abnormal [Unknown]
  - Peripheral coldness [Unknown]
  - Dizziness [Recovered/Resolved]
  - Nausea [Recovered/Resolved]
  - Drug effect decreased [Unknown]
  - Fatigue [Unknown]
